FAERS Safety Report 8471781-5 (Version None)
Quarter: 2012Q2

REPORT INFORMATION
  Report Type: 
  Country: None (occurrence: None)
  Receive Date: 20120627
  Receipt Date: 20120622
  Transmission Date: 20120825
  Serious: Yes (Hospitalization)
  Sender: FDA-Public Use
  Company Number: JP-JNJFOC-20120612374

PATIENT
  Age: 51 Year
  Sex: Male

DRUGS (2)
  1. NEORAL [Concomitant]
     Indication: PSORIASIS
     Route: 048
     Dates: start: 20101014, end: 20120517
  2. STELARA [Suspect]
     Indication: PSORIASIS
     Route: 058
     Dates: start: 20120510, end: 20120531

REACTIONS (1)
  - THYROID CANCER [None]
